FAERS Safety Report 9553982 (Version 1)
Quarter: 2013Q3

REPORT INFORMATION
  Report Type: Spontaneous
  Country: US (occurrence: None)
  Receive Date: 20130815
  Receipt Date: 20130815
  Transmission Date: 20140515
  Serious: Yes (Other)
  Sender: FDA-Public Use
  Company Number: ADR-2013-00853

PATIENT
  Age: 46 Year
  Sex: Male

DRUGS (2)
  1. BACLOFEN INTRATHECAL [Suspect]
     Indication: SPINAL PAIN
  2. MORPHINE (0.8095) AND UNKNOWN DRUG (INTRATHECAL) [Concomitant]

REACTIONS (2)
  - Cerebrovascular accident [None]
  - Viral infection [None]
